FAERS Safety Report 7142361-9 (Version None)
Quarter: 2010Q4

REPORT INFORMATION
  Report Type: 
  Country: None (occurrence: None)
  Receive Date: 20101207
  Receipt Date: 20101125
  Transmission Date: 20110411
  Serious: Yes (Hospitalization)
  Sender: FDA-Public Use
  Company Number: CA-PFIZER INC-2010157911

PATIENT
  Age: 15 Year
  Sex: Female

DRUGS (1)
  1. PRISTIQ [Suspect]
     Dosage: UNK

REACTIONS (4)
  - HAEMORRHAGE [None]
  - HYPERTENSION [None]
  - HYPERTENSIVE CRISIS [None]
  - VOMITING [None]
